FAERS Safety Report 12641307 (Version 2)
Quarter: 2016Q3

REPORT INFORMATION
  Report Type: Spontaneous
  Country: US (occurrence: US)
  Receive Date: 20160810
  Receipt Date: 20160920
  Transmission Date: 20161109
  Serious: No
  Sender: FDA-Public Use
  Company Number: US-PFIZER INC-2016368964

PATIENT
  Age: 67 Year
  Sex: Female
  Weight: 63.28 kg

DRUGS (2)
  1. NEURONTIN [Suspect]
     Active Substance: GABAPENTIN
     Dosage: 300 MG, 1X/DAY
     Route: 048
     Dates: end: 201607
  2. NEURONTIN [Suspect]
     Active Substance: GABAPENTIN
     Indication: NEURALGIA
     Dosage: 300MG IN EACH CAPSULE. TOOK TWO AT BEDTIME. ONCE A DAY
     Route: 048

REACTIONS (2)
  - Product use issue [Unknown]
  - Peripheral swelling [Unknown]
